FAERS Safety Report 9053569 (Version 1)
Quarter: 2013Q1

REPORT INFORMATION
  Report Type: Spontaneous
  Country: US (occurrence: US)
  Receive Date: 20130208
  Receipt Date: 20130208
  Transmission Date: 20140127
  Serious: No
  Sender: FDA-Public Use
  Company Number: US-TARO-2012P1018531

PATIENT
  Age: 66 Year
  Sex: Female
  Weight: 75.75 kg

DRUGS (2)
  1. NYSTATIN + TRIAMCINOLONE ACETONIDE CREAM USP [Suspect]
     Indication: VULVOVAGINAL DISCOMFORT
     Route: 061
     Dates: start: 20120427, end: 20120427
  2. VITAMIN D [Concomitant]

REACTIONS (3)
  - Vulvovaginal burning sensation [Recovering/Resolving]
  - Vulvovaginal pruritus [Recovering/Resolving]
  - Vulvovaginal pain [Recovering/Resolving]
